FAERS Safety Report 5354860-0 (Version None)
Quarter: 2007Q2

REPORT INFORMATION
  Report Type: 
  Country: None (occurrence: None)
  Receive Date: 20070611
  Receipt Date: 20070525
  Transmission Date: 20071010
  Serious: Yes (Hospitalization)
  Sender: FDA-Public Use
  Company Number: 2007RR-07818

PATIENT
  Age: 33 Year
  Sex: Female

DRUGS (6)
  1. ACICLOVIR(ACYCLOVIR) UNKNOWN [Suspect]
     Indication: DRUG USE FOR UNKNOWN INDICATION
  2. CLINDAMYCIN(CLINDAMYCIN) UNKNOWN [Suspect]
     Indication: DRUG USE FOR UNKNOWN INDICATION
  3. COMBIVIR [Suspect]
     Indication: DRUG USE FOR UNKNOWN INDICATION
  4. EFAVIRENZ [Suspect]
     Indication: DRUG USE FOR UNKNOWN INDICATION
  5. PYRIMETHAMINE TAB [Suspect]
     Indication: DRUG USE FOR UNKNOWN INDICATION
  6. KIVEXA [Concomitant]

REACTIONS (1)
  - PANCYTOPENIA [None]
